FAERS Safety Report 15639411 (Version 1)
Quarter: 2018Q4

REPORT INFORMATION
  Report Type: Spontaneous
  Country: BE (occurrence: BE)
  Receive Date: 20181120
  Receipt Date: 20181120
  Transmission Date: 20190205
  Serious: Yes (Life-Threatening, Other)
  Sender: FDA-Public Use
  Company Number: BE-CORDEN PHARMA LATINA S.P.A.-BE-2018COR000139

PATIENT

DRUGS (2)
  1. ETOPOSIDE. [Suspect]
     Active Substance: ETOPOSIDE
     Indication: ENDOMETRIAL CANCER
     Dosage: 100 MG, QD, D1-D3 (6 CYCLES OF THREE WEEKLY)
     Route: 042
  2. CISPLATIN. [Suspect]
     Active Substance: CISPLATIN
     Indication: ENDOMETRIAL CANCER
     Dosage: 80 MG, QD ON DAY 1 (6 CYCLES OF THREE WEEKLY)
     Route: 042

REACTIONS (8)
  - Renal failure [Unknown]
  - Neutropenia [Unknown]
  - Alopecia [Unknown]
  - Vomiting [Unknown]
  - Thrombocytopenia [Unknown]
  - Nausea [Unknown]
  - Anaemia [Unknown]
  - Tumour lysis syndrome [Unknown]
